FAERS Safety Report 5859653-3 (Version None)
Quarter: 2008Q3

REPORT INFORMATION
  Report Type: 
  Country: None (occurrence: None)
  Receive Date: 20080818
  Receipt Date: 20080714
  Transmission Date: 20090109
  Serious: No
  Sender: FDA-Public Use
  Company Number: WAES 0807USA02516

PATIENT
  Age: 84 Year
  Sex: Male
  Weight: 72.5755 kg

DRUGS (3)
  1. JANUVIA [Suspect]
     Indication: TYPE 2 DIABETES MELLITUS
     Dosage: 50 MG DAILY PO
     Route: 048
     Dates: start: 20080610, end: 20080711
  2. ACTOS [Concomitant]
  3. GLIPIZIDE [Concomitant]

REACTIONS (1)
  - RHINORRHOEA [None]
